FAERS Safety Report 17388802 (Version 1)
Quarter: 2020Q1

REPORT INFORMATION
  Report Type: Spontaneous
  Country: US (occurrence: US)
  Receive Date: 20200207
  Receipt Date: 20200207
  Transmission Date: 20200409
  Serious: Yes (Other)
  Sender: FDA-Public Use
  Company Number: US-PFIZER INC-2020054587

PATIENT
  Age: 66 Year
  Sex: Male
  Weight: 113.4 kg

DRUGS (1)
  1. SKELAXIN [Suspect]
     Active Substance: METAXALONE
     Indication: BACK PAIN
     Dosage: 800 MG, 4X/DAY
     Route: 048
     Dates: start: 2010

REACTIONS (1)
  - Atrial fibrillation [Unknown]
